FAERS Safety Report 9399333 (Version 2)
Quarter: 2014Q3

REPORT INFORMATION
  Report Type: Spontaneous
  Country: US (occurrence: None)
  Receive Date: 20130709
  Receipt Date: 20140813
  Transmission Date: 20150326
  Serious: Yes (Hospitalization, Other)
  Sender: FDA-Public Use
  Company Number: 2013US001841

PATIENT
  Age: 62 Year
  Sex: Female
  Weight: 88 kg

DRUGS (1)
  1. ICLUSIG [Suspect]
     Active Substance: PONATINIB
     Indication: CHRONIC MYELOID LEUKAEMIA
     Route: 048
     Dates: start: 20130501

REACTIONS (4)
  - Blast crisis in myelogenous leukaemia [None]
  - Anaphylactic shock [None]
  - Renal failure [None]
  - Leukaemia recurrent [None]

NARRATIVE: CASE EVENT DATE: 20130610
